FAERS Safety Report 26158347 (Version 1)
Quarter: 2025Q4

REPORT INFORMATION
  Report Type: Report from Study
  Country: GB (occurrence: None)
  Receive Date: 20251215
  Receipt Date: 20251215
  Transmission Date: 20260119
  Serious: Yes (Other)
  Sender: UCB
  Company Number: GB-UCBSA-2025078224

PATIENT
  Age: 9 Year
  Weight: 30.9 kg

DRUGS (4)
  1. FENFLURAMINE HYDROCHLORIDE [Suspect]
     Active Substance: FENFLURAMINE HYDROCHLORIDE
     Indication: Epilepsy
     Dosage: 5.5 MILLIGRAM, 2X/DAY (BID)
     Route: 061
  2. CLOBAZAM [Concomitant]
     Active Substance: CLOBAZAM
     Indication: Epilepsy
     Dosage: 4 MILLIGRAM
     Route: 061
  3. VALPROATE SODIUM [Concomitant]
     Active Substance: VALPROATE SODIUM
     Indication: Epilepsy
     Dosage: 450 MILLIGRAM
     Route: 061
  4. STIRIPENTOL [Concomitant]
     Active Substance: STIRIPENTOL
     Indication: Epilepsy
     Dosage: 600 MILLIGRAM
     Route: 061

REACTIONS (2)
  - Mitral valve incompetence [Not Recovered/Not Resolved]
  - Drug ineffective [Unknown]
